FAERS Safety Report 9482939 (Version 1)
Quarter: 2013Q3

REPORT INFORMATION
  Report Type: Spontaneous
  Country: CA (occurrence: CA)
  Receive Date: 20130828
  Receipt Date: 20130828
  Transmission Date: 20140515
  Serious: Yes (Hospitalization)
  Sender: FDA-Public Use
  Company Number: CA-AMGEN-KDL243051

PATIENT
  Age: 57 Year
  Sex: Female

DRUGS (15)
  1. ENBREL [Suspect]
     Indication: PSORIATIC ARTHROPATHY
     Dosage: 50 MG, 2 TIMES/WK
     Route: 058
     Dates: start: 20061202
  2. INSULIN NPH [Concomitant]
     Dosage: UNK UNK, UNK
  3. METFORMIN [Concomitant]
     Dosage: 1000 MG, BID
  4. AMITRIPTYLINE [Concomitant]
     Dosage: 10 MG, BID
  5. CANDESARTAN CILEXETIL [Concomitant]
     Dosage: 16 MG, BID
  6. KETOPROFEN [Concomitant]
     Dosage: 200 MG, QD
  7. SOTALOL [Concomitant]
     Dosage: 40 MG, BID
  8. HYDROCHLOROTHIAZIDE [Concomitant]
     Dosage: 25 MG, QD
  9. ZOPICLONE [Concomitant]
     Dosage: 7.5 MG, UNK
  10. RANITIDINE HYDROCHLORIDE [Concomitant]
     Dosage: 150 MG, BID
  11. ESTRADIOL [Concomitant]
     Dosage: UNK UNK, 2 TIMES/WK
     Route: 062
  12. RANITIDINE HYDROCHLORIDE [Concomitant]
     Dosage: 150 MG, 2 TIMES/WK
  13. ATENOLOL [Concomitant]
     Dosage: 25 MG, QD
  14. INSULIN [Concomitant]
  15. ANTIHYPERTENSIVE MEDICATION NOS [Concomitant]

REACTIONS (2)
  - Pleurisy [Not Recovered/Not Resolved]
  - Angina pectoris [Not Recovered/Not Resolved]
